FAERS Safety Report 18937494 (Version 1)
Quarter: 2021Q1

REPORT INFORMATION
  Report Type: Spontaneous
  Country: AT (occurrence: AT)
  Receive Date: 20210224
  Receipt Date: 20210224
  Transmission Date: 20210420
  Serious: Yes (Other)
  Sender: FDA-Public Use
  Company Number: AT-ASTRAZENECA-2021A059970

PATIENT
  Sex: Male

DRUGS (2)
  1. FASENRA [Suspect]
     Active Substance: BENRALIZUMAB
     Indication: ASTHMA
     Dosage: 1MG/ML EVERY EIGHT WEEKS
     Route: 058
  2. MEPIVACAINE [Suspect]
     Active Substance: MEPIVACAINE HYDROCHLORIDE
     Route: 065

REACTIONS (3)
  - Pyrexia [Unknown]
  - Anaphylactic shock [Unknown]
  - Chills [Unknown]
